FAERS Safety Report 6690460-8 (Version None)
Quarter: 2010Q2

REPORT INFORMATION
  Report Type: 
  Country: None (occurrence: None)
  Receive Date: 20100421
  Receipt Date: 20100414
  Transmission Date: 20101027
  Serious: Yes (Death, Hospitalization)
  Sender: FDA-Public Use
  Company Number: BR-ABBOTT-10P-020-0624368-00

PATIENT
  Sex: Female

DRUGS (6)
  1. HUMIRA [Suspect]
     Indication: RHEUMATOID ARTHRITIS
     Route: 058
  2. VOLTAREN [Concomitant]
     Indication: PAIN
     Route: 048
     Dates: end: 20090519
  3. KETOPROFEN [Concomitant]
     Indication: PAIN
     Route: 048
     Dates: end: 20090519
  4. TYLENOL-500 [Concomitant]
     Indication: PAIN
     Dosage: 30-35 DROPS DAILY
     Route: 048
     Dates: end: 20090519
  5. PREDNISONE TAB [Concomitant]
     Indication: RHEUMATOID ARTHRITIS
     Route: 048
     Dates: end: 20090519
  6. METHOTREXATE [Concomitant]
     Indication: RHEUMATOID ARTHRITIS
     Route: 048
     Dates: end: 20090519

REACTIONS (7)
  - ACUTE RESPIRATORY FAILURE [None]
  - BRONCHOPNEUMONIA [None]
  - CARDIAC ARREST [None]
  - DYSPNOEA [None]
  - PNEUMONIA [None]
  - RENAL FAILURE ACUTE [None]
  - RHEUMATOID ARTHRITIS [None]
